FAERS Safety Report 20779540 (Version 1)
Quarter: 2022Q2

REPORT INFORMATION
  Report Type: Spontaneous
  Country: US (occurrence: None)
  Receive Date: 20220502
  Receipt Date: 20220502
  Transmission Date: 20220721
  Serious: No
  Sender: FDA-Public Use
  Company Number: None

PATIENT
  Age: 33 Year
  Sex: Male

DRUGS (1)
  1. ANASTROZOLE\TESTOSTERONE [Suspect]
     Active Substance: ANASTROZOLE\TESTOSTERONE
     Indication: Androgen deficiency
     Dosage: OTHER FREQUENCY : ONCE WEEKLY;?
     Route: 030
     Dates: start: 20210826

REACTIONS (4)
  - Recalled product administered [None]
  - Injection site warmth [None]
  - Injection site swelling [None]
  - Injection site discomfort [None]

NARRATIVE: CASE EVENT DATE: 20220228
